FAERS Safety Report 5738010-4 (Version None)
Quarter: 2008Q2

REPORT INFORMATION
  Report Type: 
  Country: None (occurrence: None)
  Receive Date: 20080514
  Receipt Date: 20080507
  Transmission Date: 20081010
  Serious: Yes (Other)
  Sender: FDA-Public Use
  Company Number: US-ASTRAZENECA-2006UW27885

PATIENT
  Age: 333 Month
  Sex: Female
  Weight: 79.1 kg

DRUGS (5)
  1. SEROQUEL [Suspect]
     Indication: BIPOLAR DISORDER
     Route: 048
     Dates: start: 20030101, end: 20060101
  2. SEROQUEL [Suspect]
     Indication: DEPRESSION
     Route: 048
     Dates: start: 20030101, end: 20060101
  3. SEROQUEL [Suspect]
     Indication: POST-TRAUMATIC STRESS DISORDER
     Route: 048
     Dates: start: 20030101, end: 20060101
  4. RISPERDAL [Concomitant]
     Dates: start: 20010101
  5. ZYPREXA [Concomitant]
     Dates: start: 20010101

REACTIONS (4)
  - DIABETES MELLITUS [None]
  - MUSCULAR WEAKNESS [None]
  - RESORPTION BONE INCREASED [None]
  - THROMBOSIS [None]
